FAERS Safety Report 8897290 (Version 1)
Quarter: 2012Q4

REPORT INFORMATION
  Report Type: 
  Country: US (occurrence: US)
  Receive Date: 20121108
  Receipt Date: 20121108
  Transmission Date: 20130627
  Serious: No
  Sender: FDA-Public Use
  Company Number: US-AMGEN-USASP2012012106

PATIENT
  Sex: Female

DRUGS (13)
  1. ENBREL [Suspect]
     Indication: PRODUCT USED FOR UNKNOWN INDICATION
     Dosage: 50 mg, qwk
     Route: 058
  2. DARVON /00018802/ [Concomitant]
     Dosage: 65 mg, UNK
  3. PLAQUENIL                          /00072602/ [Concomitant]
     Dosage: 200 mg, UNK
  4. CELEBREX [Concomitant]
     Dosage: 200 mg, UNK
  5. ZYRTEC [Concomitant]
     Dosage: 10 mg, UNK
  6. BENADRYL                           /00000402/ [Concomitant]
     Dosage: 25 mg, UNK
  7. TRAMADOL [Concomitant]
     Dosage: 50 mg, UNK
  8. HYDROXYCHLOROQUINE [Concomitant]
  9. FOLIC ACID [Concomitant]
     Dosage: 1 mg, UNK
  10. RHINOCORT                          /00212602/ [Concomitant]
  11. ESTRADIOL [Concomitant]
     Dosage: 0.025 mg, UNK
  12. MULTIVITAMIN                       /00097801/ [Concomitant]
  13. POTASSIUM [Concomitant]
     Dosage: 25 mEq, UNK

REACTIONS (1)
  - Injection site pain [Not Recovered/Not Resolved]
